FAERS Safety Report 23679955 (Version 1)
Quarter: 2024Q1

REPORT INFORMATION
  Report Type: Spontaneous
  Country: US (occurrence: US)
  Receive Date: 20240327
  Receipt Date: 20240327
  Transmission Date: 20240410
  Serious: Yes (Hospitalization, Other)
  Sender: FDA-Public Use
  Company Number: US-FreseniusKabi-FK202404553

PATIENT
  Age: 55 Year
  Sex: Female
  Weight: 72.5 kg

DRUGS (17)
  1. MESNA [Suspect]
     Active Substance: MESNA
     Indication: B-cell type acute leukaemia
     Dosage: 300 MG/M2, CYCLE 1,3, 5, 7: DAYS 1-3
     Dates: start: 20231106
  2. VINCRISTINE SULFATE [Suspect]
     Active Substance: VINCRISTINE SULFATE
     Indication: B-cell type acute leukaemia
     Dosage: CYCLE 1, 3, 5, 7: DAY1 DAY 8?ROUTE: INTRAVENOUS
     Dates: start: 20231106
  3. INOTUZUMAB OZOGAMICIN [Suspect]
     Active Substance: INOTUZUMAB OZOGAMICIN
     Indication: B-cell type acute leukaemia
     Dosage: FIRST REGIMEN?(BATCH/LOT NUMBER: UNKNOWN)
     Dates: end: 20240117
  4. INOTUZUMAB OZOGAMICIN [Suspect]
     Active Substance: INOTUZUMAB OZOGAMICIN
     Dosage: SECOND REGIMEN?AT CYCLIC (CYCLE: 1-4 CYCLE 1: TOTAL 0.9 MG/M2, 0.6 ,G/M2 D2, 0.3 MG/M2 D8, CYCLES 2-
     Dates: start: 20231107
  5. CYTARABINE [Suspect]
     Active Substance: CYTARABINE
     Indication: B-cell type acute leukaemia
     Dosage: FIRST REGIMEN
     Dates: end: 20240118
  6. CYTARABINE [Suspect]
     Active Substance: CYTARABINE
     Dosage: SECOND REGIMEN ?0.5 G/M2/DOSE, CYCLE: 2,4,6, 8, EVERY 12 HRS X 4 DOSES, DAYS 2, 3?ROUTE: INTRAVENOUS
  7. CYTARABINE [Suspect]
     Active Substance: CYTARABINE
     Dosage: THIRD REGIMEN ?10MG, CYCLE: 1-4: DAY 2, DAY 8?ROUTE: INTRATHECAL
     Dates: start: 20231107
  8. METHOTREXATE SODIUM [Suspect]
     Active Substance: METHOTREXATE SODIUM
     Indication: B-cell type acute leukaemia
     Dosage: FIRST REGIMEN
     Dates: end: 20240115
  9. METHOTREXATE SODIUM [Suspect]
     Active Substance: METHOTREXATE SODIUM
     Dosage: SECOND REGIMEN ?250 MG/M2, CYCLE 2,4, 6, 8: DAY 1?ROUTE: INTRAVENOUS
  10. METHOTREXATE SODIUM [Suspect]
     Active Substance: METHOTREXATE SODIUM
     Dosage: THIRD REGIMEN?12 MG, CYCLE 1-4: DAY 2, DAY 8?ROUTE: INTRATHECAL
     Dates: start: 20231107
  11. METHYLPREDNISOLONE [Suspect]
     Active Substance: METHYLPREDNISOLONE
     Indication: B-cell type acute leukaemia
     Dosage: FORM: TABLET?FIRST REGIMEN
     Dates: end: 20240118
  12. METHYLPREDNISOLONE [Suspect]
     Active Substance: METHYLPREDNISOLONE
     Dosage: SECOND REGIMEN ?50 MG, CYCLE 2, 4, 6, 8: EVERY 12 HRS X 6 DOSES, DAYS 1-3?ROUTE: INTRAVENOUS
  13. RITUXIMAB [Suspect]
     Active Substance: RITUXIMAB
     Indication: B-cell type acute leukaemia
     Dosage: FIRST REGIMEN (BATCH/LOT NUMBER: UNKNOWN) ?AT TOTAL DOSE ADMINISTERED THIS COURSE: 1400 MG
     Dates: end: 20240122
  14. RITUXIMAB [Suspect]
     Active Substance: RITUXIMAB
     Dosage: SECOND REGIMEN ?(BATCH/LOT NUMBER: UNKNOWN) ?375 MG/M2, CYCLE: 1-4: DAY 2, DAY 8?ROUTE: INTRAVENOUS
     Dates: start: 20231107
  15. FILGRASTIM [Suspect]
     Active Substance: FILGRASTIM
     Indication: B-cell type acute leukaemia
     Dosage: QD X 2 DAYS?1X/DAY (480 UG, QD X 2 DAYS)?(BATCH LOT NUMBER: UNKNOWN)
     Dates: start: 20240121, end: 20240122
  16. DEXAMETHASONE [Suspect]
     Active Substance: DEXAMETHASONE
     Indication: B-cell type acute leukaemia
     Dosage: ROUTE: IV OR PO?20 MG, IV OR PO, CYDE 1, 3, 5, 7: DAYS 1-4, DAYS 11-14)
     Dates: start: 20231106
  17. CYCLOPHOSPHAMIDE [Suspect]
     Active Substance: CYCLOPHOSPHAMIDE
     Indication: B-cell type acute leukaemia
     Dosage: 150 MG/M2, CYCLE 1,3,5,7: EVERY 12 HRS X 6 DOSES, DAYS 1-3?ROUTE: INTRAVENOUS
     Dates: start: 20231106

REACTIONS (1)
  - Febrile neutropenia [Recovering/Resolving]

NARRATIVE: CASE EVENT DATE: 20240126
